FAERS Safety Report 10678126 (Version 2)
Quarter: 2015Q1

REPORT INFORMATION
  Report Type: Spontaneous
  Country: DE (occurrence: None)
  Receive Date: 20141223
  Receipt Date: 20150115
  Transmission Date: 20150720
  Serious: Yes (Other)
  Sender: FDA-Public Use
  Company Number: 8001982

PATIENT
  Age: 80 Year
  Sex: Female

DRUGS (3)
  1. GABABENTIN (GABAPENTIN) [Concomitant]
  2. VERAPAMIL  (VERAPAMIL) (2240 MILLIGRAM, TABLET) (VERAPAMIL) [Concomitant]
  3. NOVOTHYRAL (NOVOTHYRAL) (LEVOTHYROXINE SODIUM, LIOTHYRONINE SODIUM) [Suspect]
     Active Substance: LEVOTHYROXINE SODIUM\LIOTHYRONINE SODIUM
     Indication: THYROIDECTOMY
     Route: 048

REACTIONS (4)
  - Dizziness [None]
  - Headache [None]
  - Blood thyroid stimulating hormone decreased [None]
  - Depressed level of consciousness [None]

NARRATIVE: CASE EVENT DATE: 2014
